FAERS Safety Report 5960049-4 (Version None)
Quarter: 2008Q4

REPORT INFORMATION
  Report Type: 
  Country: None (occurrence: None)
  Receive Date: 20081119
  Receipt Date: 20081119
  Transmission Date: 20090506
  Serious: Yes (Hospitalization)
  Sender: FDA-Public Use
  Company Number: None

PATIENT
  Age: 49 Year
  Sex: Female
  Weight: 56.4 kg

DRUGS (15)
  1. VORICONAZOLE [Suspect]
     Indication: BRONCHOPULMONARY ASPERGILLOSIS
     Dosage: 200 MG PO Q12 HOURS
     Route: 048
  2. CACO3 [Concomitant]
  3. PULMOZYME [Concomitant]
  4. EPOPROSTENOL SODIUM [Concomitant]
  5. FENTANYL [Concomitant]
  6. HEPARIN [Concomitant]
  7. HYDROCORTISONE [Concomitant]
  8. INSULIN [Concomitant]
  9. IPRATROPIUM BROMIDE AND ALBUTEROL SULFATE [Concomitant]
  10. FERROUS SULFATE [Concomitant]
  11. LORAZEPAM [Concomitant]
  12. MONTELUKAST SODIUM [Concomitant]
  13. RANITIDINE [Concomitant]
  14. ZOSYN [Concomitant]
  15. VANCOMYCIN HCL [Concomitant]

REACTIONS (3)
  - ALANINE AMINOTRANSFERASE INCREASED [None]
  - ASPARTATE AMINOTRANSFERASE INCREASED [None]
  - HYPOXIA [None]
